FAERS Safety Report 8540016-7 (Version None)
Quarter: 2012Q3

REPORT INFORMATION
  Report Type: 
  Country: None (occurrence: None)
  Receive Date: 20120726
  Receipt Date: 20080720
  Transmission Date: 20120928
  Serious: Yes (Other)
  Sender: FDA-Public Use
  Company Number: CO-PFIZER INC-2012179008

PATIENT
  Age: 71 Year
  Sex: Female

DRUGS (7)
  1. METFORMIN [Concomitant]
     Dosage: 850 MG EVERY 12 HOURS
  2. VERAPAMIL HYDROCHLORIDE [Concomitant]
     Dosage: 120 MG EVERY 12 HOURS
  3. INSULATARD NPH [Concomitant]
     Dosage: 20 IU EVERY 12 HOURS (80-100 IU/ML)
  4. OLMESARTAN MEDOXOMIL AND HYDROCHLOROTHIZIDE [Suspect]
     Indication: HYPERTENSION
     Dosage: 20/12.5 MG EVERY 24 HOURS
  5. ASPIRIN [Concomitant]
     Dosage: 100 MG EVERY 24 HOURS
  6. ENALAPRIL [Concomitant]
     Dosage: 20 MG EVERY 12 HOURS
  7. LIPITOR [Suspect]
     Indication: DYSLIPIDAEMIA
     Dosage: 10 MG EVERY 24 HOURS

REACTIONS (3)
  - LEUKOCYTURIA [None]
  - ANXIETY [None]
  - HYPERTENSIVE EMERGENCY [None]
